FAERS Safety Report 9397142 (Version 1)
Quarter: 2013Q3

REPORT INFORMATION
  Report Type: Spontaneous
  Country: ES (occurrence: ES)
  Receive Date: 20130712
  Receipt Date: 20130712
  Transmission Date: 20140515
  Serious: Yes (Disabling)
  Sender: FDA-Public Use
  Company Number: PHHY2013ES073555

PATIENT
  Sex: Male

DRUGS (5)
  1. TASIGNA [Suspect]
     Indication: CHRONIC MYELOID LEUKAEMIA
     Dosage: 300 MG, BID
     Route: 048
     Dates: start: 20130611
  2. SINTROM [Concomitant]
  3. TORASEMID [Concomitant]
  4. RAMIPRIL [Concomitant]
  5. CARVEDIOL [Concomitant]

REACTIONS (1)
  - Urinary retention [Not Recovered/Not Resolved]
